FAERS Safety Report 4300465-X (Version None)
Quarter: 2004Q1

REPORT INFORMATION
  Report Type: 
  Country: None (occurrence: None)
  Receive Date: 20040217
  Receipt Date: 20040203
  Transmission Date: 20041129
  Serious: Yes (Hospitalization)
  Sender: FDA-Public Use
  Company Number: CIP04000228

PATIENT
  Age: 59 Year
  Sex: Female

DRUGS (1)
  1. DIDRONEL [Suspect]
     Indication: OSTEOPOROSIS
     Dosage: 200 MG DAILY, ORAL
     Route: 048
     Dates: start: 20021201

REACTIONS (1)
  - COLITIS ISCHAEMIC [None]
